FAERS Safety Report 12012762 (Version 10)
Quarter: 2019Q3

REPORT INFORMATION
  Report Type: Spontaneous
  Country: US (occurrence: US)
  Receive Date: 20160205
  Receipt Date: 20190724
  Transmission Date: 20191004
  Serious: No
  Sender: FDA-Public Use
  Company Number: US-PFIZER INC-2016062491

PATIENT
  Age: 63 Year
  Sex: Female
  Weight: 118 kg

DRUGS (23)
  1. FLONASE [Concomitant]
     Active Substance: FLUTICASONE PROPIONATE
     Dosage: UNK, AS NEEDED
  2. SUMATRIPTAN. [Concomitant]
     Active Substance: SUMATRIPTAN
     Indication: MIGRAINE
     Dosage: UNK, AS NEEDED
     Route: 048
  3. MOTRIN [Concomitant]
     Active Substance: IBUPROFEN
     Dosage: UNK
  4. IBUPROFEN. [Concomitant]
     Active Substance: IBUPROFEN
     Dosage: 6 DF, DAILY
  5. EFFEXOR [Concomitant]
     Active Substance: VENLAFAXINE HYDROCHLORIDE
     Dosage: 150 MG, 2X/DAY
  6. ISOSORBIDE MONONITRATE. [Concomitant]
     Active Substance: ISOSORBIDE MONONITRATE
     Dosage: 30 MG, 1X/DAY
     Route: 048
  7. VITAMIN A + D [ERGOCALCIFEROL\RETINOL] [Concomitant]
     Active Substance: ERGOCALCIFEROL\RETINOL
     Dosage: UNK
  8. VENLAFAXINE [Concomitant]
     Active Substance: VENLAFAXINE HYDROCHLORIDE
     Dosage: 100 MG, 2X/DAY
     Route: 048
  9. MIACALCIN [Concomitant]
     Active Substance: CALCITONIN SALMON
     Dosage: UNK, DAILY
     Route: 045
     Dates: end: 201504
  10. PERCOCET [Concomitant]
     Active Substance: ACETAMINOPHEN\OXYCODONE HYDROCHLORIDE
     Indication: PAIN
     Dosage: 2 DF, AS NEEDED
  11. TYLENOL [Concomitant]
     Active Substance: ACETAMINOPHEN
     Dosage: 51 MG, AS NEEDED
  12. FLONASE [Concomitant]
     Active Substance: FLUTICASONE PROPIONATE
     Dosage: UNK, DAILY (TWO SPRAYS EACH NOSTRIL)
     Route: 045
  13. SOTALOL. [Concomitant]
     Active Substance: SOTALOL
     Dosage: UNK
  14. ALBUTEROL. [Concomitant]
     Active Substance: ALBUTEROL
     Indication: WHEEZING
     Dosage: UNK, 4X/DAY
     Route: 045
  15. ALPRAZOLAM. [Concomitant]
     Active Substance: ALPRAZOLAM
     Indication: ANXIETY
     Dosage: 1 MG, 2X/DAY
     Route: 048
  16. LYRICA [Suspect]
     Active Substance: PREGABALIN
     Indication: POLYNEUROPATHY
  17. PANTOPRAZOLE [Concomitant]
     Active Substance: PANTOPRAZOLE
     Dosage: 40 MG, DAILY
     Route: 048
  18. LYRICA [Suspect]
     Active Substance: PREGABALIN
     Indication: NEUROPATHY PERIPHERAL
     Dosage: 225 MG, 2X/DAY
     Route: 048
     Dates: start: 2005
  19. LYRICA [Suspect]
     Active Substance: PREGABALIN
     Indication: FIBROMYALGIA
     Dosage: 225 MG, 2X/DAY
     Route: 048
     Dates: start: 2006, end: 20161226
  20. DILTIAZEM. [Concomitant]
     Active Substance: DILTIAZEM
     Dosage: 120 MG, DAILY
     Route: 048
  21. DILTIAZEM. [Concomitant]
     Active Substance: DILTIAZEM
     Dosage: UNK, AS NEEDED
  22. SOTALOL. [Concomitant]
     Active Substance: SOTALOL
     Dosage: 40 MG, UNK
  23. ASPIRIN. [Concomitant]
     Active Substance: ASPIRIN
     Dosage: 81 MG, DAILY
     Route: 048

REACTIONS (14)
  - Mental disorder [Recovered/Resolved]
  - Gait disturbance [Recovered/Resolved]
  - Feeling of body temperature change [Recovered/Resolved]
  - Asthenia [Recovered/Resolved]
  - Hypersomnia [Recovered/Resolved]
  - Intentional product misuse [Unknown]
  - Withdrawal syndrome [Recovered/Resolved]
  - Pain [Recovered/Resolved]
  - Malaise [Recovered/Resolved]
  - Pain in extremity [Recovering/Resolving]
  - Decreased appetite [Recovered/Resolved]
  - Burning sensation [Recovering/Resolving]
  - Hyperhidrosis [Recovered/Resolved]
  - Headache [Recovered/Resolved]

NARRATIVE: CASE EVENT DATE: 20161226
